FAERS Safety Report 17508569 (Version 1)
Quarter: 2020Q1

REPORT INFORMATION
  Report Type: Spontaneous
  Country: US (occurrence: US)
  Receive Date: 20200305
  Receipt Date: 20200305
  Transmission Date: 20200409
  Serious: Yes (Hospitalization)
  Sender: FDA-Public Use
  Company Number: None

PATIENT
  Age: 66 Year
  Sex: Female

DRUGS (2)
  1. MEKINIST [Suspect]
     Active Substance: TRAMETINIB DIMETHYL SULFOXIDE
     Indication: OVARIAN CANCER
     Route: 048
     Dates: start: 20191001
  2. MEKINIST [Suspect]
     Active Substance: TRAMETINIB DIMETHYL SULFOXIDE
     Indication: GENE MUTATION
     Route: 048
     Dates: start: 20191001

REACTIONS (5)
  - Flatulence [None]
  - Gastrointestinal sounds abnormal [None]
  - Muscle spasms [None]
  - Diarrhoea [None]
  - Abdominal distension [None]

NARRATIVE: CASE EVENT DATE: 20200305
